FAERS Safety Report 6819862-3 (Version None)
Quarter: 2010Q2

REPORT INFORMATION
  Report Type: 
  Country: None (occurrence: None)
  Receive Date: 20100630
  Receipt Date: 20100624
  Transmission Date: 20101027
  Serious: Yes (Hospitalization)
  Sender: FDA-Public Use
  Company Number: ABX72-10-0306

PATIENT
  Age: 52 Year
  Sex: Male
  Weight: 72.5755 kg

DRUGS (14)
  1. ABRAXANE [Suspect]
     Indication: HEAD AND NECK CANCER
     Dosage: (150 MG/M2), INTRAVENOUS
     Route: 042
     Dates: start: 20100525
  2. CARBOPLATIN [Suspect]
     Indication: HEAD AND NECK CANCER
     Dosage: (1.5 AUC)
     Dates: start: 20100525, end: 20100615
  3. RADIATION THERAPY [Suspect]
  4. ATIVAN [Concomitant]
  5. ATROVENT [Concomitant]
  6. COMPAZINE [Concomitant]
  7. DECADRON [Concomitant]
  8. DURAGESIC-100 [Concomitant]
  9. FLOVENT [Concomitant]
  10. MIRACLE MOUTHWASH [Concomitant]
  11. PRILOSEC (OMEPRAZOLE) [Concomitant]
  12. ALBUTEROL [Concomitant]
  13. OXYCODONE HCL [Concomitant]
  14. ZOFRAN [Concomitant]

REACTIONS (2)
  - PNEUMONIA ASPIRATION [None]
  - PULMONARY EMBOLISM [None]
